FAERS Safety Report 10166766 (Version 2)
Quarter: 2014Q2

REPORT INFORMATION
  Report Type: Spontaneous
  Country: IT (occurrence: IT)
  Receive Date: 20140512
  Receipt Date: 20140625
  Transmission Date: 20141212
  Serious: Yes (Hospitalization)
  Sender: FDA-Public Use
  Company Number: IT-SA-2014SA057064

PATIENT
  Age: 86 Year
  Sex: Male

DRUGS (6)
  1. LASIX [Suspect]
     Indication: PRODUCT USED FOR UNKNOWN INDICATION
     Route: 048
     Dates: start: 20110101, end: 20140401
  2. HUMALOG [Concomitant]
     Indication: DIABETES MELLITUS
     Dosage: STRENGTH: 100 U/ML , 1 BOTTLE 10 ML
     Route: 048
  3. LANTUS [Concomitant]
     Indication: DIABETES MELLITUS
     Dosage: STRENGTH:5 VIALS OF 5 ML
     Route: 058
  4. CARDIRENE [Concomitant]
     Dosage: 160 MG POWDER FOR ORAL SOLUTION, 30 SACHETS
  5. ROCALTROL [Concomitant]
  6. ALBUTEROL [Concomitant]

REACTIONS (2)
  - Atrial fibrillation [Recovering/Resolving]
  - Hypokalaemia [Recovering/Resolving]
